FAERS Safety Report 21900508 (Version 1)
Quarter: 2023Q1

REPORT INFORMATION
  Report Type: Spontaneous
  Country: US (occurrence: US)
  Receive Date: 20230123
  Receipt Date: 20230123
  Transmission Date: 20230418
  Serious: Yes (Other)
  Sender: FDA-Public Use
  Company Number: US-009507513-2301USA006764

PATIENT
  Age: 64 Year
  Sex: Female

DRUGS (1)
  1. JANUMET [Suspect]
     Active Substance: METFORMIN HYDROCHLORIDE\SITAGLIPTIN PHOSPHATE
     Indication: Diabetes mellitus
     Dosage: TWICE PER DAY
     Route: 048
     Dates: start: 2016

REACTIONS (3)
  - Rheumatoid arthritis [Unknown]
  - Surgery [Unknown]
  - Foot operation [Not Recovered/Not Resolved]

NARRATIVE: CASE EVENT DATE: 20221216
